FAERS Safety Report 25022230 (Version 3)
Quarter: 2025Q4

REPORT INFORMATION
  Report Type: Spontaneous
  Country: US (occurrence: US)
  Receive Date: 20250228
  Receipt Date: 20251013
  Transmission Date: 20260117
  Serious: No
  Sender: ROCHE
  Company Number: US-ROCHE-10000211993

PATIENT
  Age: 31 Year
  Sex: Female

DRUGS (3)
  1. XOLAIR PFS [Suspect]
     Active Substance: OMALIZUMAB
     Indication: Urticaria
     Dosage: ONGOING, STRENGTH:150MG/ML
     Route: 058
     Dates: start: 202410
  2. XOLAIR PFS [Suspect]
     Active Substance: OMALIZUMAB
     Indication: Urticaria
  3. DUPIXENT [Suspect]
     Active Substance: DUPILUMAB
     Indication: Eosinophilic oesophagitis
     Route: 058
     Dates: start: 202405

REACTIONS (5)
  - Urticaria [Unknown]
  - Pruritus [Unknown]
  - Eczema [Unknown]
  - Rash erythematous [Unknown]
  - Erythema [Unknown]

NARRATIVE: CASE EVENT DATE: 20250801
